FAERS Safety Report 23756194 (Version 2)
Quarter: 2024Q2

REPORT INFORMATION
  Report Type: Spontaneous
  Country: IL (occurrence: IL)
  Receive Date: 20240418
  Receipt Date: 20240501
  Transmission Date: 20240716
  Serious: Yes (Life-Threatening)
  Sender: FDA-Public Use
  Company Number: IL-AMERICAN REGENT INC-2024001378

PATIENT
  Age: 38 Year
  Sex: Female

DRUGS (1)
  1. FERINJECT [Suspect]
     Active Substance: FERRIC CARBOXYMALTOSE
     Indication: Product used for unknown indication
     Dosage: UNK
     Route: 042

REACTIONS (7)
  - Throat irritation [Unknown]
  - Skin discolouration [Unknown]
  - Blood pressure increased [Unknown]
  - Chest discomfort [Unknown]
  - Palpitations [Unknown]
  - Pruritus [Unknown]
  - Rash [Unknown]
